FAERS Safety Report 11812000 (Version 1)
Quarter: 2015Q4

REPORT INFORMATION
  Report Type: Spontaneous
  Country: US (occurrence: US)
  Receive Date: 20151208
  Receipt Date: 20151208
  Transmission Date: 20160305
  Serious: No
  Sender: FDA-Public Use
  Company Number: US-ENDO PHARMACEUTICALS INC.-201411123

PATIENT
  Age: 77 Year
  Sex: Male
  Weight: 93.07 kg

DRUGS (2)
  1. TESTIM [Suspect]
     Active Substance: TESTOSTERONE
     Dosage: 1 TUBE DAILY
     Route: 061
     Dates: start: 20120903, end: 20121003
  2. ZETIA [Concomitant]
     Active Substance: EZETIMIBE

REACTIONS (1)
  - Headache [Recovering/Resolving]

NARRATIVE: CASE EVENT DATE: 2014
